FAERS Safety Report 4672545-0 (Version None)
Quarter: 2005Q2

REPORT INFORMATION
  Report Type: 
  Country: None (occurrence: None)
  Receive Date: 20050524
  Receipt Date: 20050509
  Transmission Date: 20051028
  Serious: Yes (Hospitalization)
  Sender: FDA-Public Use
  Company Number: GBWYE650309MAY05

PATIENT
  Sex: Female
  Weight: 43 kg

DRUGS (3)
  1. ENBREL [Suspect]
     Indication: JUVENILE ARTHRITIS
     Route: 058
     Dates: start: 20040108, end: 20050114
  2. IBUPROFEN [Concomitant]
  3. METHOTREXATE [Concomitant]

REACTIONS (2)
  - CONDITION AGGRAVATED [None]
  - UVEITIS [None]
